FAERS Safety Report 5322797-9 (Version None)
Quarter: 2007Q2

REPORT INFORMATION
  Report Type: 
  Country: None (occurrence: None)
  Receive Date: 20070511
  Receipt Date: 20070502
  Transmission Date: 20071010
  Serious: Yes (Hospitalization)
  Sender: FDA-Public Use
  Company Number: AU-PFIZER INC-2007023964

PATIENT
  Sex: Male
  Weight: 15 kg

DRUGS (1)
  1. DILANTIN [Suspect]
     Indication: EPILEPSY
     Route: 048

REACTIONS (1)
  - CONVULSION [None]
